FAERS Safety Report 9717353 (Version 2)
Quarter: 2014Q1

REPORT INFORMATION
  Report Type: Spontaneous
  Country: IT (occurrence: None)
  Receive Date: 20131125
  Receipt Date: 20140123
  Transmission Date: 20141002
  Serious: Yes (Hospitalization)
  Sender: FDA-Public Use
  Company Number: AUR-APL-2013-09715

PATIENT
  Age: 26 Year
  Sex: Female

DRUGS (2)
  1. AMOXICILLIN [Suspect]
     Indication: OROPHARYNGEAL PAIN
     Dosage: (1 DOSAGE FORMS, TOTAL),  ORAL
     Route: 048
     Dates: start: 20131103, end: 20131103
  2. VENTOLIN (SALBUTAMOL) [Concomitant]

REACTIONS (3)
  - Eyelid oedema [None]
  - Tongue oedema [None]
  - Dyspepsia [None]
